FAERS Safety Report 10908087 (Version 1)
Quarter: 2015Q1

REPORT INFORMATION
  Report Type: Spontaneous
  Country: IT (occurrence: IT)
  Receive Date: 20150312
  Receipt Date: 20150312
  Transmission Date: 20150721
  Serious: Yes (Hospitalization)
  Sender: FDA-Public Use
  Company Number: IT-PFIZER INC-2015090551

PATIENT
  Age: 4 Year
  Sex: Male

DRUGS (2)
  1. CEFODOX [Suspect]
     Active Substance: CEFPODOXIME PROXETIL
     Indication: SCARLET FEVER
     Dosage: 112 MG, DAILY
     Dates: start: 20140417, end: 20140419
  2. ZYRTEC [Concomitant]
     Active Substance: CETIRIZINE HYDROCHLORIDE
     Indication: CONJUNCTIVITIS
     Dosage: UNK
     Dates: start: 20140330, end: 20140423

REACTIONS (3)
  - Oedema peripheral [Recovering/Resolving]
  - Haematuria [Recovering/Resolving]
  - Bilirubinuria [Recovering/Resolving]

NARRATIVE: CASE EVENT DATE: 20140419
